FAERS Safety Report 9394883 (Version 13)
Quarter: 2014Q2

REPORT INFORMATION
  Report Type: Spontaneous
  Country: CA (occurrence: CA)
  Receive Date: 20130711
  Receipt Date: 20140509
  Transmission Date: 20141212
  Serious: Yes (Hospitalization, Disabling, Other)
  Sender: FDA-Public Use
  Company Number: CA-ROCHE-1243260

PATIENT
  Age: 39 Year
  Sex: Male

DRUGS (10)
  1. XOLAIR [Suspect]
     Indication: ASTHMA
     Route: 058
     Dates: start: 20130425
  2. XOLAIR [Suspect]
     Route: 058
     Dates: start: 20130528
  3. XOLAIR [Suspect]
     Route: 058
     Dates: start: 20130725
  4. XOLAIR [Suspect]
     Route: 058
     Dates: start: 20140206
  5. ADVAIR [Concomitant]
  6. UNIPHYL [Concomitant]
  7. VENTOLIN [Concomitant]
  8. SPIRIVA [Concomitant]
  9. ACETAZOLAMIDE [Concomitant]
     Dosage: 250 MG IN AFTERNOON AND 250 MG IN EVENING
     Route: 065
  10. VITAMIN C [Concomitant]

REACTIONS (23)
  - Pneumonia [Unknown]
  - Asthma [Unknown]
  - Intracranial pressure increased [Unknown]
  - Thyroid neoplasm [Unknown]
  - Chronic obstructive pulmonary disease [Not Recovered/Not Resolved]
  - Vomiting [Not Recovered/Not Resolved]
  - Malaise [Unknown]
  - Oropharyngeal pain [Not Recovered/Not Resolved]
  - Injection site pain [Unknown]
  - Fatigue [Not Recovered/Not Resolved]
  - Dizziness [Not Recovered/Not Resolved]
  - Immune system disorder [Unknown]
  - Lung disorder [Unknown]
  - Stress [Unknown]
  - Nervous system disorder [Unknown]
  - Brain hypoxia [Unknown]
  - Dyspnoea [Unknown]
  - Dehydration [Unknown]
  - Nephrolithiasis [Unknown]
  - Pharyngitis streptococcal [Unknown]
  - Nausea [Unknown]
  - Wheezing [Unknown]
  - Blood parathyroid hormone increased [Unknown]
